FAERS Safety Report 21240544 (Version 3)
Quarter: 2022Q3

REPORT INFORMATION
  Report Type: Report from Study
  Country: US (occurrence: US)
  Receive Date: 20220822
  Receipt Date: 20220912
  Transmission Date: 20221026
  Serious: Yes (Hospitalization, Other)
  Sender: FDA-Public Use
  Company Number: US-BRISTOL-MYERS SQUIBB COMPANY-2022-091911

PATIENT
  Age: 22 Year
  Sex: Female

DRUGS (12)
  1. NIVOLUMAB [Suspect]
     Active Substance: NIVOLUMAB
     Indication: Hepatocellular carcinoma
     Dosage: PRIME: 3 MG/KG; BOOST: 480 MG
     Route: 065
     Dates: start: 20220111
  2. NIVOLUMAB [Suspect]
     Active Substance: NIVOLUMAB
     Dosage: LAST DOSE PRIOR TO SAE?PRIME: 3 MG/KG; BOOST: 480 MG
     Route: 065
     Dates: start: 20220405
  3. IPILIMUMAB [Suspect]
     Active Substance: IPILIMUMAB
     Indication: Hepatocellular carcinoma
     Route: 065
     Dates: start: 20220111
  4. IPILIMUMAB [Suspect]
     Active Substance: IPILIMUMAB
     Dosage: LAST DOSE PRIOR TO SAE
     Route: 065
     Dates: start: 20220405
  5. INVESTIGATIONAL PRODUCT [Suspect]
     Active Substance: INVESTIGATIONAL PRODUCT
     Indication: Hepatocellular carcinoma
     Route: 065
     Dates: start: 20220111
  6. INVESTIGATIONAL PRODUCT [Suspect]
     Active Substance: INVESTIGATIONAL PRODUCT
     Route: 065
     Dates: start: 20220405
  7. LENVATINIB [Concomitant]
     Active Substance: LENVATINIB
     Indication: Product used for unknown indication
     Route: 048
     Dates: start: 20220512
  8. ONDANSETRON [Concomitant]
     Active Substance: ONDANSETRON
     Indication: Product used for unknown indication
     Dosage: PRN
     Route: 048
  9. LETROZOLE [Concomitant]
     Active Substance: LETROZOLE
     Indication: Product used for unknown indication
     Route: 048
     Dates: start: 20220707
  10. CETRORELIX [Concomitant]
     Active Substance: CETRORELIX
     Indication: Product used for unknown indication
     Route: 058
     Dates: start: 20220707, end: 20220810
  11. FOLLITROPIN ALFA [Concomitant]
     Active Substance: FOLLITROPIN ALFA
     Indication: Product used for unknown indication
     Dosage: 225 UNITS
     Route: 058
     Dates: start: 20220707, end: 20220810
  12. FERROUS SULFATE [Concomitant]
     Active Substance: FERROUS SULFATE
     Indication: Product used for unknown indication
     Route: 048
     Dates: start: 20220803, end: 20220810

REACTIONS (1)
  - Diabetic ketoacidosis [Recovered/Resolved]

NARRATIVE: CASE EVENT DATE: 20220807
